FAERS Safety Report 18417867 (Version 1)
Quarter: 2020Q4

REPORT INFORMATION
  Report Type: Report from Study
  Country: None (occurrence: CA)
  Receive Date: 20201022
  Receipt Date: 20201022
  Transmission Date: 20210114
  Serious: Yes (Other)
  Sender: FDA-Public Use
  Company Number: CA-ABBVIE-20K-028-3617521-00

PATIENT
  Age: 70 Year
  Sex: Male

DRUGS (1)
  1. HUMIRA [Suspect]
     Active Substance: ADALIMUMAB
     Indication: CROHN^S DISEASE
     Route: 058
     Dates: start: 20190916

REACTIONS (7)
  - Pruritus [Not Recovered/Not Resolved]
  - Arthritis [Not Recovered/Not Resolved]
  - Colonic fistula [Not Recovered/Not Resolved]
  - Visual impairment [Not Recovered/Not Resolved]
  - Astigmatism [Not Recovered/Not Resolved]
  - Vision blurred [Not Recovered/Not Resolved]
  - Eye injury [Not Recovered/Not Resolved]

NARRATIVE: CASE EVENT DATE: 202002
